FAERS Safety Report 17441804 (Version 1)
Quarter: 2020Q1

REPORT INFORMATION
  Report Type: Spontaneous
  Country: DE (occurrence: DE)
  Receive Date: 20200220
  Receipt Date: 20200220
  Transmission Date: 20200409
  Serious: Yes (Life-Threatening, Hospitalization, Other)
  Sender: FDA-Public Use
  Company Number: DE-MYLANLABS-2020M1018907

PATIENT
  Sex: Female
  Weight: 75 kg

DRUGS (3)
  1. METHOTREXATE. [Suspect]
     Active Substance: METHOTREXATE
     Indication: PRODUCT USED FOR UNKNOWN INDICATION
     Dosage: UNK
     Route: 065
  2. ORENCIA [Suspect]
     Active Substance: ABATACEPT
     Indication: RHEUMATOID ARTHRITIS
     Dosage: 125 MILLIGRAM, QW
     Route: 058
     Dates: start: 20180802
  3. CORTISONE [Suspect]
     Active Substance: CORTISONE
     Indication: RHEUMATOID ARTHRITIS
     Dosage: UNK
     Route: 065

REACTIONS (3)
  - Alveolitis [Unknown]
  - Pneumonitis [Not Recovered/Not Resolved]
  - Respiratory failure [Unknown]

NARRATIVE: CASE EVENT DATE: 201810
